FAERS Safety Report 7704706-8 (Version None)
Quarter: 2011Q3

REPORT INFORMATION
  Report Type: 
  Country: None (occurrence: None)
  Receive Date: 20110823
  Receipt Date: 20100824
  Transmission Date: 20111222
  Serious: No
  Sender: FDA-Public Use
  Company Number: US-BRISTOL-MYERS SQUIBB COMPANY-15253255

PATIENT
  Sex: Female

DRUGS (1)
  1. ESTRADIOL [Suspect]
     Route: 048

REACTIONS (1)
  - DRUG INEFFECTIVE [None]
